FAERS Safety Report 18810619 (Version 2)
Quarter: 2021Q1

REPORT INFORMATION
  Report Type: Spontaneous
  Country: US (occurrence: US)
  Receive Date: 20210129
  Receipt Date: 20210305
  Transmission Date: 20210419
  Serious: Yes (Other)
  Sender: FDA-Public Use
  Company Number: US-ASTRAZENECA-2021A010393

PATIENT
  Age: 67 Year
  Sex: Female
  Weight: 78.9 kg

DRUGS (24)
  1. METOPROLOL. [Suspect]
     Active Substance: METOPROLOL
     Route: 065
  2. PENICILLIN [Suspect]
     Active Substance: PENICILLIN
     Route: 065
     Dates: start: 1974
  3. SULPHUR [Suspect]
     Active Substance: SULFUR
     Route: 065
  4. SACCHARIN [Concomitant]
     Active Substance: SACCHARIN
     Route: 065
  5. TRIAMCINOLONE [Concomitant]
     Active Substance: TRIAMCINOLONE
     Route: 065
  6. AZTREONAM. [Concomitant]
     Active Substance: AZTREONAM
     Route: 065
  7. SULPHONIDE (SULFONAMIDES) [Suspect]
     Active Substance: UNSPECIFIED INGREDIENT
     Route: 065
  8. ASPIRIN. [Suspect]
     Active Substance: ASPIRIN
     Route: 065
  9. CELECOXIB. [Concomitant]
     Active Substance: CELECOXIB
     Route: 065
  10. DAPSONE. [Concomitant]
     Active Substance: DAPSONE
     Route: 065
  11. LISINOPRIL. [Suspect]
     Active Substance: LISINOPRIL
     Route: 048
  12. LEVOFLOXACIN. [Concomitant]
     Active Substance: LEVOFLOXACIN
     Route: 065
  13. LISINOPRIL. [Concomitant]
     Active Substance: LISINOPRIL
  14. DOXYCYCLINE. [Suspect]
     Active Substance: DOXYCYCLINE
     Route: 065
     Dates: start: 2007
  15. PENICILLIN [Concomitant]
     Active Substance: PENICILLIN
     Route: 065
  16. IBUPROFEN. [Concomitant]
     Active Substance: IBUPROFEN
     Route: 065
  17. OMEPRAZOLE. [Suspect]
     Active Substance: OMEPRAZOLE
     Route: 048
     Dates: start: 2019
  18. CEPHALOSPORINS [Concomitant]
     Active Substance: UNSPECIFIED INGREDIENT
  19. DOXYCYCLINE. [Concomitant]
     Active Substance: DOXYCYCLINE
     Route: 065
  20. LEVAQUIN [Suspect]
     Active Substance: LEVOFLOXACIN
     Route: 065
     Dates: start: 1980
  21. CARBAPENEMS [Concomitant]
     Active Substance: UNSPECIFIED INGREDIENT
     Route: 065
  22. CARVEDILOL. [Concomitant]
     Active Substance: CARVEDILOL
     Route: 065
  23. DIAZEPAM. [Concomitant]
     Active Substance: DIAZEPAM
     Route: 065
  24. THIAZIDE?TYPE DIURETICS [Concomitant]
     Route: 065

REACTIONS (26)
  - Bronchitis [Unknown]
  - Heart rate increased [Unknown]
  - Rash [Unknown]
  - Vascular injury [Unknown]
  - Arthralgia [Unknown]
  - Abdominal pain upper [Unknown]
  - Weight increased [Unknown]
  - Blood cholesterol increased [Unknown]
  - Pain [Unknown]
  - Myalgia [Unknown]
  - Dyspnoea [Unknown]
  - Burning sensation [Unknown]
  - Pyrexia [Unknown]
  - Pain in extremity [Unknown]
  - Endometrial cancer stage I [Unknown]
  - Inflammation [Unknown]
  - Abdominal pain [Unknown]
  - Drug hypersensitivity [Unknown]
  - Feeling abnormal [Unknown]
  - Insomnia [Unknown]
  - Gastric ulcer [Unknown]
  - Herpes zoster [Unknown]
  - Hyperhidrosis [Unknown]
  - Neuralgia [Unknown]
  - Foot deformity [Unknown]
  - Headache [Unknown]

NARRATIVE: CASE EVENT DATE: 2007
